FAERS Safety Report 10184254 (Version 1)
Quarter: 2014Q2

REPORT INFORMATION
  Report Type: Spontaneous
  Country: US (occurrence: US)
  Receive Date: 20140520
  Receipt Date: 20140520
  Transmission Date: 20141212
  Serious: No
  Sender: FDA-Public Use
  Company Number: US-ASTRAZENECA-2014SE21663

PATIENT
  Age: 57 Year
  Sex: Female
  Weight: 63.5 kg

DRUGS (3)
  1. RHINOCORT AQUA [Suspect]
     Indication: MULTIPLE ALLERGIES
     Dosage: 64 MCG, ONE SPRAY EACH NOSTRIL TWICE DAILY
     Route: 045
     Dates: end: 201312
  2. NASONEX [Suspect]
     Route: 065
  3. ZOLAIR [Concomitant]

REACTIONS (2)
  - Sinusitis [Unknown]
  - Intentional product misuse [Unknown]
